FAERS Safety Report 8883610 (Version 1)
Quarter: 2012Q4

REPORT INFORMATION
  Report Type: 
  Country: US (occurrence: US)
  Receive Date: 20121102
  Receipt Date: 20121102
  Transmission Date: 20130627
  Serious: No
  Sender: FDA-Public Use
  Company Number: US-ASTRAZENECA-2012SE01822

PATIENT
  Age: 79 Year
  Sex: Male

DRUGS (3)
  1. CRESTOR [Suspect]
     Route: 048
     Dates: start: 2010
  2. AZITHROMYCIN [Concomitant]
  3. COQ10 [Concomitant]

REACTIONS (4)
  - Neck pain [Unknown]
  - Headache [Unknown]
  - Fatigue [Unknown]
  - Blood creatine phosphokinase increased [Unknown]
